FAERS Safety Report 22189785 (Version 1)
Quarter: 2023Q2

REPORT INFORMATION
  Report Type: Spontaneous
  Country: US (occurrence: US)
  Receive Date: 20230410
  Receipt Date: 20230410
  Transmission Date: 20230722
  Serious: Yes (Hospitalization)
  Sender: FDA-Public Use
  Company Number: US-JNJFOC-20230413595

PATIENT
  Age: 65 Year
  Sex: Male

DRUGS (1)
  1. SIMPONI [Suspect]
     Active Substance: GOLIMUMAB
     Indication: Arthritis reactive
     Route: 058
     Dates: start: 202209

REACTIONS (2)
  - Appendicectomy [Unknown]
  - Off label use [Unknown]

NARRATIVE: CASE EVENT DATE: 20230327
